FAERS Safety Report 7402325-4 (Version None)
Quarter: 2011Q1

REPORT INFORMATION
  Report Type: 
  Country: None (occurrence: None)
  Receive Date: 20110331
  Receipt Date: 20110318
  Transmission Date: 20110831
  Serious: Yes (Other)
  Sender: FDA-Public Use
  Company Number: 2011MA001640

PATIENT
  Age: 82 Year
  Sex: Male

DRUGS (7)
  1. SIMVASTATIN [Concomitant]
  2. AMLODIPINE [Concomitant]
  3. LISINOPRIL [Concomitant]
  4. LEVETIRACETAM [Suspect]
     Indication: CONVULSION
     Dosage: 500 MG;PM;PO
     Route: 048
     Dates: start: 20101201
  5. METFORMIN [Concomitant]
  6. DEXAMETHASONE [Concomitant]
  7. LANSOPRAZOLE [Suspect]
     Indication: PROPHYLAXIS
     Dosage: 30 MG; PO
     Route: 048
     Dates: start: 20101201

REACTIONS (1)
  - WHITE BLOOD CELL COUNT DECREASED [None]
